FAERS Safety Report 21939313 (Version 2)
Quarter: 2023Q1

REPORT INFORMATION
  Report Type: Spontaneous
  Country: US (occurrence: US)
  Receive Date: 20230201
  Receipt Date: 20230310
  Transmission Date: 20230417
  Serious: Yes (Death, Other)
  Sender: FDA-Public Use
  Company Number: US-INCYTE CORPORATION-2023IN001049

PATIENT

DRUGS (1)
  1. JAKAFI [Suspect]
     Active Substance: RUXOLITINIB
     Indication: Chronic leukaemia
     Dosage: 5 MILLIGRAM, BID
     Route: 048

REACTIONS (4)
  - Sepsis [Fatal]
  - Pneumonia [Unknown]
  - Cardiac disorder [Unknown]
  - Off label use [Unknown]
